FAERS Safety Report 7999230-1 (Version None)
Quarter: 2011Q4

REPORT INFORMATION
  Report Type: 
  Country: None (occurrence: None)
  Receive Date: 20111221
  Receipt Date: 20111216
  Transmission Date: 20120403
  Serious: Yes (Congenital Anomaly)
  Sender: FDA-Public Use
  Company Number: FR-PFIZER INC-2011028847

PATIENT

DRUGS (1)
  1. LYRICA [Suspect]
     Dosage: 150 MG, 2X/DAY
     Route: 064

REACTIONS (2)
  - HEART DISEASE CONGENITAL [None]
  - FOETAL EXPOSURE DURING PREGNANCY [None]
